FAERS Safety Report 10068388 (Version 3)
Quarter: 2014Q2

REPORT INFORMATION
  Report Type: Spontaneous
  Country: US (occurrence: US)
  Receive Date: 20140409
  Receipt Date: 20140530
  Transmission Date: 20141212
  Serious: Yes (Other)
  Sender: FDA-Public Use
  Company Number: US-PFIZER INC-2014098981

PATIENT
  Age: 72 Year
  Sex: Male
  Weight: 68 kg

DRUGS (10)
  1. GABAPENTIN [Suspect]
     Indication: DIABETIC NEUROPATHY
     Dosage: 300MG IN MORNING, 300MG AT NOON, 600MG AT NIGHT
     Route: 048
  2. GABAPENTIN [Suspect]
     Indication: ANXIETY
     Dosage: 300 MG, 2X/DAY
  3. GABAPENTIN [Suspect]
     Indication: DIABETIC NEUROPATHY
  4. GLIMEPIRIDE [Concomitant]
     Indication: DIABETES MELLITUS
     Dosage: 1 MG, DAILY
  5. ATENOLOL [Concomitant]
     Indication: HYPERTENSION
     Dosage: 25 MG, DAILY
  6. LEVOTHYROXINE [Concomitant]
     Indication: HYPOTHYROIDISM
     Dosage: 150 UG, DAILY
  7. SIMVASTATIN [Concomitant]
     Dosage: 40 MG, DAILY
  8. ATIVAN [Concomitant]
     Dosage: UNK
  9. ACIDOPHILUS [Concomitant]
     Dosage: UNK
  10. AMITRIPTYLINE [Concomitant]
     Indication: DEPRESSION
     Dosage: 100 MG, DAILY (AT NIGHT)

REACTIONS (4)
  - Renal impairment [Unknown]
  - Suicide attempt [Unknown]
  - Renal disorder [Not Recovered/Not Resolved]
  - Anxiety [Unknown]
